FAERS Safety Report 24961164 (Version 1)
Quarter: 2025Q1

REPORT INFORMATION
  Report Type: Report from Study
  Country: PT (occurrence: PT)
  Receive Date: 20250212
  Receipt Date: 20250212
  Transmission Date: 20250408
  Serious: Yes (Other)
  Sender: JOHNSON AND JOHNSON
  Company Number: None

PATIENT
  Age: 58 Year
  Sex: Female

DRUGS (6)
  1. XARELTO [Suspect]
     Active Substance: RIVAROXABAN
     Indication: Thrombophlebitis
     Dosage: 20 MG, QD
  2. HUMAN BLOOD VESSEL [Concomitant]
     Active Substance: HUMAN BLOOD VESSEL
     Indication: Varicose vein
     Route: 048
  3. NEBIVOLOL CICLUM [Concomitant]
     Indication: Product used for unknown indication
     Dosage: 5 MG
     Route: 048
  4. DAPAGLIFLOZIN PROPANEDIOL\METFORMIN HYDROCHLORIDE [Concomitant]
     Active Substance: DAPAGLIFLOZIN PROPANEDIOL\METFORMIN HYDROCHLORIDE
     Indication: Product used for unknown indication
     Dosage: 855 MG
     Route: 048
  5. ENALAPRIL + LERCANIDIPINA ALTER [Concomitant]
     Indication: Product used for unknown indication
     Dosage: 30 MG
     Route: 048
  6. Sinvastatina + ezetimiba [Concomitant]
     Indication: Product used for unknown indication
     Dosage: 30 MG, QD

REACTIONS (3)
  - Pruritus [Unknown]
  - Heart rate increased [Unknown]
  - Dry mouth [Unknown]
